FAERS Safety Report 5728649-4 (Version None)
Quarter: 2008Q2

REPORT INFORMATION
  Report Type: 
  Country: None (occurrence: None)
  Receive Date: 20080506
  Receipt Date: 20080428
  Transmission Date: 20081010
  Serious: Yes (Other)
  Sender: FDA-Public Use
  Company Number: PHNU2008DE01673

PATIENT
  Sex: Male

DRUGS (2)
  1. CLOZAPINE [Suspect]
     Indication: PSYCHOTIC DISORDER
     Dosage: 300 MG/DAY
     Route: 048
  2. ABILIFY [Suspect]
     Indication: PSYCHOTIC DISORDER
     Dosage: 15 MG/DAY
     Route: 048
     Dates: start: 20080401

REACTIONS (3)
  - DRUG INTERACTION [None]
  - DYSPNOEA [None]
  - PSYCHOTIC DISORDER [None]
